FAERS Safety Report 21611977 (Version 4)
Quarter: 2023Q1

REPORT INFORMATION
  Report Type: Report from Study
  Country: US (occurrence: US)
  Receive Date: 20221118
  Receipt Date: 20230119
  Transmission Date: 20230417
  Serious: Yes (Other)
  Sender: FDA-Public Use
  Company Number: US-ABBVIE-4204560

PATIENT
  Sex: Female
  Weight: 59 kg

DRUGS (6)
  1. HUMIRA [Suspect]
     Active Substance: ADALIMUMAB
     Indication: Crohn^s disease
     Route: 058
     Dates: start: 2012
  2. VITAMIN A [Concomitant]
     Active Substance: VITAMIN A
     Indication: Product used for unknown indication
  3. COVID-19 vaccine [Concomitant]
     Indication: COVID-19 immunisation
     Dosage: ONE IN ONCE
     Route: 030
  4. CHOLESTYRAMINE [Concomitant]
     Active Substance: CHOLESTYRAMINE
     Indication: Product used for unknown indication
     Dosage: 5.7 GRAMS  SUSPENSION
     Route: 048
  5. NORTRIPTYLINE [Concomitant]
     Active Substance: NORTRIPTYLINE
     Indication: Sleep disorder therapy
  6. PREVACID [Concomitant]
     Active Substance: LANSOPRAZOLE
     Indication: Barrett^s oesophagus

REACTIONS (7)
  - Basal cell carcinoma [Recovered/Resolved]
  - COVID-19 [Recovered/Resolved]
  - Steatohepatitis [Not Recovered/Not Resolved]
  - Hypertension [Recovered/Resolved]
  - Barrett^s oesophagus [Not Recovered/Not Resolved]
  - Musculoskeletal disorder [Recovering/Resolving]
  - Dysphagia [Recovering/Resolving]

NARRATIVE: CASE EVENT DATE: 20140101
